FAERS Safety Report 21648724 (Version 1)
Quarter: 2022Q4

REPORT INFORMATION
  Report Type: Spontaneous
  Country: US (occurrence: None)
  Receive Date: 20221123
  Receipt Date: 20221123
  Transmission Date: 20230113
  Serious: Yes (Hospitalization)
  Sender: FDA-Public Use
  Company Number: None

PATIENT
  Sex: Female
  Weight: 72.94 kg

DRUGS (2)
  1. XELODA [Suspect]
     Active Substance: CAPECITABINE
     Indication: Product used for unknown indication
     Dates: end: 20221011
  2. ELOXATIN [Suspect]
     Active Substance: OXALIPLATIN
     Dates: end: 20221005

REACTIONS (19)
  - Nausea [None]
  - Vomiting [None]
  - Asthenia [None]
  - Therapy interrupted [None]
  - Malaise [None]
  - Dehydration [None]
  - Hypotension [None]
  - Adult failure to thrive [None]
  - Hypophagia [None]
  - Refusal of treatment by patient [None]
  - Listless [None]
  - Urinary tract infection [None]
  - Anaemia [None]
  - Loss of personal independence in daily activities [None]
  - Haematochezia [None]
  - Haemoglobin decreased [None]
  - Gastritis [None]
  - Gastrointestinal haemorrhage [None]
  - Malnutrition [None]
